FAERS Safety Report 15619906 (Version 3)
Quarter: 2018Q4

REPORT INFORMATION
  Report Type: Report from Study
  Country: US (occurrence: US)
  Receive Date: 20181115
  Receipt Date: 20181204
  Transmission Date: 20190205
  Serious: Yes (Hospitalization, Other)
  Sender: FDA-Public Use
  Company Number: US-BRISTOL-MYERS SQUIBB COMPANY-BMS-2018-106205

PATIENT
  Age: 15 Year
  Sex: Female

DRUGS (2)
  1. NKTR-214 [Suspect]
     Active Substance: BEMPEGALDESLEUKIN
     Indication: OSTEOSARCOMA
     Dosage: 0.006 MG/KG, UNK
     Route: 065
     Dates: start: 20180720, end: 20181015
  2. NIVOLUMAB [Suspect]
     Active Substance: NIVOLUMAB
     Indication: OSTEOSARCOMA
     Dosage: 4.5 MG/KG, Q3WK
     Route: 065
     Dates: start: 20180720, end: 20181015

REACTIONS (1)
  - Vascular access complication [Not Recovered/Not Resolved]

NARRATIVE: CASE EVENT DATE: 20181108
